FAERS Safety Report 13121241 (Version 3)
Quarter: 2017Q1

REPORT INFORMATION
  Report Type: Spontaneous
  Country: CZ (occurrence: CZ)
  Receive Date: 20170117
  Receipt Date: 20170201
  Transmission Date: 20170428
  Serious: Yes (Death, Other)
  Sender: FDA-Public Use
  Company Number: CZ-PFIZER INC-2017013300

PATIENT
  Age: 76 Year
  Sex: Male
  Weight: 69 kg

DRUGS (10)
  1. NEUROL /00595201/ [Suspect]
     Active Substance: ALPRAZOLAM
     Indication: DEPRESSION
     Dosage: 0.25 MG, 3X/DAY
     Route: 048
  2. MIRTAZAPIN SANDOZ 45 MG [Suspect]
     Active Substance: MIRTAZAPINE
     Indication: SLEEP DISORDER
  3. ZOLOFT [Suspect]
     Active Substance: SERTRALINE HYDROCHLORIDE
     Dosage: 50 MG, 1X/DAY, (1/2-0-0)
     Route: 048
     Dates: start: 20160906
  4. MIRTAZAPIN MYLAN [Suspect]
     Active Substance: MIRTAZAPINE
     Indication: DEPRESSION
     Dosage: 45 MG, 1X/DAY,  0-0-1
     Route: 048
  5. NEUROL /00595201/ [Suspect]
     Active Substance: ALPRAZOLAM
     Dosage: 0.5 MG, 3X/DAY
     Route: 048
     Dates: start: 20160906
  6. QUETIAPIN MYLAN [Suspect]
     Active Substance: QUETIAPINE FUMARATE
     Indication: DEPRESSION
     Dosage: 75 MG, 1X/DAY BEFORE SLEEPING
     Route: 048
  7. QUETIAPIN MYLAN [Suspect]
     Active Substance: QUETIAPINE FUMARATE
     Indication: SLEEP DISORDER
  8. ZOLOFT [Suspect]
     Active Substance: SERTRALINE HYDROCHLORIDE
     Indication: DEPRESSION
     Dosage: 100 MG, 1X/DAY (1-0-0) IN THE MORNING
     Route: 048
  9. MIRTAZAPIN MYLAN [Suspect]
     Active Substance: MIRTAZAPINE
     Indication: SLEEP DISORDER
  10. MIRTAZAPIN SANDOZ 45 MG [Suspect]
     Active Substance: MIRTAZAPINE
     Indication: DEPRESSION
     Dosage: 45 MG, 1X/DAY

REACTIONS (10)
  - Condition aggravated [Unknown]
  - Completed suicide [Fatal]
  - Depression [Unknown]
  - Poor quality sleep [Unknown]
  - Tremor [Unknown]
  - Gait disturbance [Unknown]
  - Palpitations [Unknown]
  - Drug ineffective [Unknown]
  - Movement disorder [Unknown]
  - Atrial tachycardia [Unknown]

NARRATIVE: CASE EVENT DATE: 20161214
